FAERS Safety Report 11627801 (Version 1)
Quarter: 2015Q4

REPORT INFORMATION
  Report Type: Spontaneous
  Country: US (occurrence: None)
  Receive Date: 20151013
  Receipt Date: 20151013
  Transmission Date: 20160304
  Serious: No
  Sender: FDA-Public Use
  Company Number: None

PATIENT
  Age: 67 Year
  Sex: Female
  Weight: 79.38 kg

DRUGS (1)
  1. METRONIDAZOLE. [Suspect]
     Active Substance: METRONIDAZOLE
     Indication: BACTERIAL VAGINOSIS
     Dates: start: 20141021, end: 20141025

REACTIONS (4)
  - Pruritus generalised [None]
  - Pruritus [None]
  - Bacterial vaginosis [None]
  - Erythema [None]

NARRATIVE: CASE EVENT DATE: 20141023
